FAERS Safety Report 8306315-9 (Version None)
Quarter: 2012Q2

REPORT INFORMATION
  Report Type: 
  Country: None (occurrence: None)
  Receive Date: 20120423
  Receipt Date: 20120412
  Transmission Date: 20120825
  Serious: Yes (Hospitalization, Other)
  Sender: FDA-Public Use
  Company Number: KR-BAXTER-2011BH018747

PATIENT
  Age: 69 Year
  Sex: Female
  Weight: 57.1 kg

DRUGS (1)
  1. NAVELBINE [Suspect]
     Route: 042
     Dates: start: 20101020, end: 20110406

REACTIONS (3)
  - NEUTROPENIA [None]
  - FEBRILE NEUTROPENIA [None]
  - SHOCK [None]
